FAERS Safety Report 21691964 (Version 4)
Quarter: 2023Q1

REPORT INFORMATION
  Report Type: Report from Study
  Country: US (occurrence: US)
  Receive Date: 20221207
  Receipt Date: 20230112
  Transmission Date: 20230418
  Serious: No
  Sender: FDA-Public Use
  Company Number: US-002147023-NVSC2022US283369

PATIENT
  Sex: Female

DRUGS (1)
  1. TABRECTA [Suspect]
     Active Substance: CAPMATINIB
     Indication: Lung neoplasm malignant
     Dosage: 150 MG, BID
     Route: 048
     Dates: start: 202211

REACTIONS (5)
  - Headache [Unknown]
  - Skin fissures [Unknown]
  - Fluid retention [Unknown]
  - Drug intolerance [Unknown]
  - Peripheral swelling [Unknown]
